FAERS Safety Report 13006770 (Version 1)
Quarter: 2016Q4

REPORT INFORMATION
  Report Type: Spontaneous
  Country: GB (occurrence: GB)
  Receive Date: 20161207
  Receipt Date: 20161207
  Transmission Date: 20170207
  Serious: Yes (Death, Hospitalization)
  Sender: FDA-Public Use
  Company Number: GB-TEVA-716323ACC

PATIENT
  Age: 76 Year
  Sex: Female

DRUGS (2)
  1. AMIODARONE [Suspect]
     Active Substance: AMIODARONE
     Indication: ATRIAL FIBRILLATION
  2. XARELTO [Concomitant]
     Active Substance: RIVAROXABAN
     Dates: end: 20160929

REACTIONS (3)
  - Pneumonitis [Not Recovered/Not Resolved]
  - Pneumonia [Fatal]
  - Dyspnoea [Unknown]
